FAERS Safety Report 16387857 (Version 1)
Quarter: 2019Q2

REPORT INFORMATION
  Report Type: Spontaneous
  Country: US (occurrence: US)
  Receive Date: 20190604
  Receipt Date: 20190604
  Transmission Date: 20190711
  Serious: No
  Sender: FDA-Public Use
  Company Number: US-GLAXOSMITHKLINE-US2019099159

PATIENT
  Age: 21 Year
  Sex: Female

DRUGS (1)
  1. ALLI [Suspect]
     Active Substance: ORLISTAT
     Indication: WEIGHT LOSS DIET
     Dosage: UNK,( I THINK BEFORE MY MEAL I^M NOT SURE BUT I THINK I TOOK TWO)
     Dates: end: 20190531

REACTIONS (2)
  - Extra dose administered [Unknown]
  - Incorrect dose administered [Unknown]
